FAERS Safety Report 8366412-9 (Version None)
Quarter: 2012Q2

REPORT INFORMATION
  Report Type: 
  Country: None (occurrence: None)
  Receive Date: 20120517
  Receipt Date: 20120514
  Transmission Date: 20120825
  Serious: Yes (Hospitalization)
  Sender: FDA-Public Use
  Company Number: CO-PFIZER INC-2012118069

PATIENT
  Age: 9 Year
  Sex: Female

DRUGS (3)
  1. FLUDROCORTISONE [Concomitant]
     Indication: ADRENAL INSUFFICIENCY
     Dosage: 0.5 MG EVERY 24 HOURS ORALLY
     Route: 048
     Dates: start: 20060301
  2. GENOTROPIN [Suspect]
     Indication: GROWTH HORMONE DEFICIENCY
     Dosage: 0.9 IU, 1X/DAY
     Route: 058
     Dates: start: 20061201
  3. PREDNISOLONE [Concomitant]
     Dosage: 1.5 MG, 1X/DAY
     Dates: start: 20050401

REACTIONS (3)
  - ABDOMINAL PAIN [None]
  - DIARRHOEA [None]
  - VOMITING [None]
